FAERS Safety Report 6073772-0 (Version None)
Quarter: 2009Q1

REPORT INFORMATION
  Report Type: 
  Country: None (occurrence: None)
  Receive Date: 20090204
  Receipt Date: 20090204
  Transmission Date: 20090719
  Serious: Yes (Hospitalization)
  Sender: FDA-Public Use
  Company Number: None

PATIENT
  Weight: 67 kg

DRUGS (7)
  1. NEUPRO [Suspect]
     Indication: PARKINSON'S DISEASE
     Dosage: (TRANSDERMAL)
     Route: 062
     Dates: start: 20061026
  2. ISDN [Concomitant]
  3. BISOMERCK [Concomitant]
  4. MOLSIDOMIN [Concomitant]
  5. GODAMED TAH [Concomitant]
  6. BUDIAIR [Concomitant]
  7. BERODUEL [Concomitant]

REACTIONS (1)
  - CEREBROVASCULAR ACCIDENT [None]
